FAERS Safety Report 9903300 (Version 3)
Quarter: 2015Q3

REPORT INFORMATION
  Report Type: Spontaneous
  Country: US (occurrence: US)
  Receive Date: 20140217
  Receipt Date: 20150810
  Transmission Date: 20151125
  Serious: No
  Sender: FDA-Public Use
  Company Number: US-GILEAD-2011-0045548

PATIENT
  Age: 64 Year
  Sex: Male

DRUGS (3)
  1. REVATIO [Concomitant]
     Active Substance: SILDENAFIL CITRATE
  2. LETAIRIS [Suspect]
     Active Substance: AMBRISENTAN
     Indication: PULMONARY HYPERTENSION
     Dosage: 10 MG, UNK
     Route: 048
     Dates: start: 20100428
  3. LETAIRIS [Suspect]
     Active Substance: AMBRISENTAN
     Indication: MOUNTAIN SICKNESS ACUTE

REACTIONS (3)
  - Prostate cancer [Unknown]
  - Malaise [Unknown]
  - Radiotherapy [Unknown]
